FAERS Safety Report 12867059 (Version 1)
Quarter: 2016Q4

REPORT INFORMATION
  Report Type: Spontaneous
  Country: US (occurrence: US)
  Receive Date: 20161020
  Receipt Date: 20161020
  Transmission Date: 20170207
  Serious: No
  Sender: FDA-Public Use
  Company Number: US-JAZZ-2016-US-014585

PATIENT
  Sex: Female

DRUGS (16)
  1. XYREM [Suspect]
     Active Substance: SODIUM OXYBATE
     Dosage: 3 G, BID
     Route: 048
     Dates: start: 201602
  2. ASPIRIN. [Concomitant]
     Active Substance: ASPIRIN
  3. CYCLOBENZAPRINE [Concomitant]
     Active Substance: CYCLOBENZAPRINE
  4. DESONIDE. [Concomitant]
     Active Substance: DESONIDE
  5. ATORVASTATIN [Concomitant]
     Active Substance: ATORVASTATIN
  6. EFFEXOR [Concomitant]
     Active Substance: VENLAFAXINE HYDROCHLORIDE
  7. VYTONE [Concomitant]
     Active Substance: HYDROCORTISONE ACETATE\IODOQUINOL
  8. PERCOCET [Concomitant]
     Active Substance: ACETAMINOPHEN\OXYCODONE HYDROCHLORIDE
  9. XYREM [Suspect]
     Active Substance: SODIUM OXYBATE
     Indication: NARCOLEPSY
     Dosage: 2.25 G, BID
     Route: 048
     Dates: start: 200612, end: 200703
  10. XYREM [Suspect]
     Active Substance: SODIUM OXYBATE
     Indication: CATAPLEXY
     Dosage: DOSE ADJUSTMENTS
     Route: 048
     Dates: start: 200703, end: 201602
  11. IBUPROFEN. [Concomitant]
     Active Substance: IBUPROFEN
  12. PREMARIN [Concomitant]
     Active Substance: ESTROGENS, CONJUGATED
  13. VENLAFAXINE HCL [Concomitant]
     Active Substance: VENLAFAXINE HYDROCHLORIDE
  14. TRIAMCINOLONE [Concomitant]
     Active Substance: TRIAMCINOLONE
  15. BETAXOLOL. [Concomitant]
     Active Substance: BETAXOLOL
  16. CLINDAMYCIN PHOSPHATE. [Concomitant]
     Active Substance: CLINDAMYCIN PHOSPHATE

REACTIONS (1)
  - Enuresis [Unknown]
